FAERS Safety Report 4834480-4 (Version None)
Quarter: 2005Q4

REPORT INFORMATION
  Report Type: 
  Country: None (occurrence: None)
  Receive Date: 20051122
  Receipt Date: 20041220
  Transmission Date: 20060501
  Serious: No
  Sender: FDA-Public Use
  Company Number: US-BRISTOL-MYERS SQUIBB COMPANY-12801510

PATIENT
  Age: 65 Year
  Sex: Female
  Weight: 79 kg

DRUGS (13)
  1. PRAVACHOL [Suspect]
     Indication: BLOOD CHOLESTEROL INCREASED
     Dosage: IN 2002, PRAVASTATIN INCREASED TO 40MG.
     Route: 048
     Dates: start: 20010101, end: 20041011
  2. NORVASC [Concomitant]
  3. AVAPRO [Concomitant]
  4. ATENOLOL [Concomitant]
  5. GLUCOPHAGE [Concomitant]
  6. AMARYL [Concomitant]
  7. SYNTHROID [Concomitant]
  8. LANOXIN [Concomitant]
  9. ASPIRIN [Concomitant]
  10. PLAVIX [Concomitant]
  11. TRAZODONE HCL [Concomitant]
  12. VITAMINS [Concomitant]
  13. LASIX [Concomitant]

REACTIONS (2)
  - DRUG INEFFECTIVE [None]
  - PAIN [None]
